FAERS Safety Report 19037262 (Version 1)
Quarter: 2021Q1

REPORT INFORMATION
  Report Type: Spontaneous
  Country: US (occurrence: US)
  Receive Date: 20210322
  Receipt Date: 20210322
  Transmission Date: 20210420
  Serious: Yes (Other)
  Sender: FDA-Public Use
  Company Number: None

PATIENT
  Age: 9 Year
  Sex: Female
  Weight: 20 kg

DRUGS (8)
  1. MAGNESIUM HYDROXIDE. [Concomitant]
     Active Substance: MAGNESIUM HYDROXIDE
  2. LAMOTRIGINE. [Concomitant]
     Active Substance: LAMOTRIGINE
  3. NORDITROPIN [Concomitant]
     Active Substance: SOMATROPIN
  4. SENNA (EXLAX) [Concomitant]
  5. ARIPIPRAZOLE. [Concomitant]
     Active Substance: ARIPIPRAZOLE
  6. BISACODYL. [Concomitant]
     Active Substance: BISACODYL
  7. POLYETHYLENE GLYCOL 3350. [Suspect]
     Active Substance: POLYETHYLENE GLYCOL 3350
     Indication: CONSTIPATION
     Dosage: ?          OTHER ROUTE:GASTROSTOMY TUBE?
     Dates: start: 20210228, end: 20210317
  8. MELATONIN [Concomitant]
     Active Substance: MELATONIN

REACTIONS (10)
  - Adverse drug reaction [None]
  - Abnormal behaviour [None]
  - Anger [None]
  - Intentional self-injury [None]
  - Irritability [None]
  - Mood swings [None]
  - Affect lability [None]
  - Aggression [None]
  - Skin haemorrhage [None]
  - Trichotillomania [None]

NARRATIVE: CASE EVENT DATE: 20210313
